FAERS Safety Report 18143333 (Version 3)
Quarter: 2020Q3

REPORT INFORMATION
  Report Type: Spontaneous
  Country: US (occurrence: US)
  Receive Date: 20200813
  Receipt Date: 20200914
  Transmission Date: 20201103
  Serious: No
  Sender: FDA-Public Use
  Company Number: US-SA-2020SA206949

PATIENT

DRUGS (3)
  1. DUPIXENT [Suspect]
     Active Substance: DUPILUMAB
     Dosage: 300 MG, QOW
     Route: 058
  2. DUPIXENT [Suspect]
     Active Substance: DUPILUMAB
     Dosage: 600 MG, QOW
     Dates: start: 20200701
  3. DUPIXENT [Suspect]
     Active Substance: DUPILUMAB
     Dosage: UNK, 1X

REACTIONS (6)
  - Eye pain [Not Recovered/Not Resolved]
  - Product use issue [Unknown]
  - Ocular hyperaemia [Unknown]
  - Lacrimation increased [Unknown]
  - Dry eye [Not Recovered/Not Resolved]
  - Eye pruritus [Unknown]

NARRATIVE: CASE EVENT DATE: 20200701
